FAERS Safety Report 15485552 (Version 2)
Quarter: 2018Q4

REPORT INFORMATION
  Report Type: Spontaneous
  Country: ES (occurrence: ES)
  Receive Date: 20181010
  Receipt Date: 20181012
  Transmission Date: 20190205
  Serious: Yes (Other)
  Sender: FDA-Public Use
  Company Number: PHHY2018ES117959

PATIENT

DRUGS (2)
  1. TRIAMCINOLONE ACETONIDE. [Suspect]
     Active Substance: TRIAMCINOLONE ACETONIDE
     Indication: POLYMYALGIA RHEUMATICA
     Dosage: UNK
     Route: 065
  2. METHOTREXATE. [Suspect]
     Active Substance: METHOTREXATE
     Indication: POLYMYALGIA RHEUMATICA
     Dosage: 7.5 MG, QW (5-7.5 MG/WEEK)
     Route: 065

REACTIONS (1)
  - Thrombocytopenia [Unknown]
